FAERS Safety Report 4941553-4 (Version None)
Quarter: 2006Q1

REPORT INFORMATION
  Report Type: 
  Country: None (occurrence: None)
  Receive Date: 20060310
  Receipt Date: 20060310
  Transmission Date: 20060701
  Serious: Yes (Disabling)
  Sender: FDA-Public Use
  Company Number: None

PATIENT
  Age: 82 Year
  Sex: Female
  Weight: 69 kg

DRUGS (5)
  1. FUROSEMIDE [Suspect]
     Indication: URINE OUTPUT DECREASED
     Dosage: SEE IMAGE
     Dates: start: 20060228
  2. FUROSEMIDE [Suspect]
     Indication: URINE OUTPUT DECREASED
     Dosage: SEE IMAGE
     Dates: start: 20060301
  3. FUROSEMIDE [Suspect]
     Indication: URINE OUTPUT DECREASED
     Dosage: SEE IMAGE
     Dates: start: 20060301
  4. NEXIUM [Concomitant]
  5. ONDANSETRON [Concomitant]

REACTIONS (2)
  - DEAFNESS UNILATERAL [None]
  - HYPOACUSIS [None]
